FAERS Safety Report 7189931-X (Version None)
Quarter: 2010Q4

REPORT INFORMATION
  Report Type: 
  Country: None (occurrence: None)
  Receive Date: 20101123
  Receipt Date: 20100820
  Transmission Date: 20110411
  Serious: No
  Sender: FDA-Public Use
  Company Number: 017564

PATIENT
  Sex: Male
  Weight: 92.5 kg

DRUGS (3)
  1. CIMZIA [Suspect]
     Indication: CROHN'S DISEASE
     Dosage: (2 INJECTION SUBCUTANEOUS)
     Route: 058
     Dates: start: 20081201
  2. MESALAMINE [Concomitant]
  3. MULTI-VITAMINS [Concomitant]

REACTIONS (2)
  - TREMOR [None]
  - URTICARIA [None]
